FAERS Safety Report 4538140-9 (Version None)
Quarter: 2004Q4

REPORT INFORMATION
  Report Type: 
  Country: None (occurrence: None)
  Receive Date: 20041221
  Receipt Date: 20041215
  Transmission Date: 20050328
  Serious: Yes (Other)
  Sender: FDA-Public Use
  Company Number: 200410673BYL

PATIENT
  Age: 19 Year
  Sex: Female

DRUGS (1)
  1. ADALAT [Suspect]
     Indication: HYPERTENSION
     Dosage: 20 MG, QD, ORAL
     Route: 048

REACTIONS (3)
  - RASH [None]
  - SYSTEMIC LUPUS ERYTHEMATOSUS [None]
  - THROMBOCYTOPENIA [None]
